FAERS Safety Report 24186453 (Version 2)
Quarter: 2024Q3

REPORT INFORMATION
  Report Type: Report from Study
  Country: PR (occurrence: PR)
  Receive Date: 20240808
  Receipt Date: 20240815
  Transmission Date: 20241016
  Serious: Yes (Other)
  Sender: ABBVIE
  Company Number: PR-ABBVIE-5865630

PATIENT
  Age: 47 Year
  Sex: Female
  Weight: 78.925 kg

DRUGS (1)
  1. RINVOQ [Suspect]
     Active Substance: UPADACITINIB
     Indication: Rheumatoid arthritis
     Route: 048
     Dates: start: 20230101

REACTIONS (9)
  - Renal mass [Recovered/Resolved]
  - Anal incontinence [Recovered/Resolved]
  - Melanocytic naevus [Not Recovered/Not Resolved]
  - Rheumatoid arthritis [Recovering/Resolving]
  - Pain [Recovering/Resolving]
  - Ovarian mass [Not Recovered/Not Resolved]
  - Weight decreased [Unknown]
  - Abdominal mass [Recovered/Resolved]
  - Renal cancer [Recovered/Resolved]

NARRATIVE: CASE EVENT DATE: 20231001
